FAERS Safety Report 13818145 (Version 1)
Quarter: 2017Q3

REPORT INFORMATION
  Report Type: Spontaneous
  Country: US (occurrence: US)
  Receive Date: 20170731
  Receipt Date: 20170731
  Transmission Date: 20171127
  Serious: Yes (Other)
  Sender: FDA-Public Use
  Company Number: US-ROCHE-641320

PATIENT
  Age: 66 Year
  Sex: Female

DRUGS (5)
  1. CALTRATE WITH VITAMIN D [Concomitant]
     Active Substance: CALCIUM CARBONATE\CHOLECALCIFEROL
     Indication: OSTEOPOROSIS
     Route: 048
  2. DICLOFENAC [Concomitant]
     Active Substance: DICLOFENAC
     Indication: PAIN
     Dosage: FREQUENCY AS NEEDED Q 12 HRS.
     Route: 061
  3. PREDNISONE. [Concomitant]
     Active Substance: PREDNISONE
     Indication: RHEUMATOID ARTHRITIS
     Route: 048
  4. SYNTHROID [Concomitant]
     Active Substance: LEVOTHYROXINE SODIUM
     Indication: UNEVALUABLE EVENT
     Route: 048
  5. BONIVA [Suspect]
     Active Substance: IBANDRONATE SODIUM
     Indication: OSTEOPOROSIS
     Dosage: INJECTION INTERRUPTED IMMEDIATELY DUE TO THE EVENTS AND RESTARTED
     Route: 042

REACTIONS (5)
  - Injection site warmth [Unknown]
  - Injection site thrombosis [Recovering/Resolving]
  - Injection site extravasation [Unknown]
  - Injection site mass [Unknown]
  - Injection site reaction [Unknown]

NARRATIVE: CASE EVENT DATE: 20090625
